FAERS Safety Report 5781824-5 (Version None)
Quarter: 2008Q2

REPORT INFORMATION
  Report Type: 
  Country: None (occurrence: None)
  Receive Date: 20080623
  Receipt Date: 20080613
  Transmission Date: 20081010
  Serious: Yes (Hospitalization)
  Sender: FDA-Public Use
  Company Number: FR-AVENTIS-200812276FR

PATIENT
  Age: 58 Year
  Sex: Female

DRUGS (8)
  1. LOVENOX [Suspect]
     Route: 058
     Dates: start: 20080210, end: 20080411
  2. COVERSYL                           /00790701/ [Suspect]
     Route: 048
     Dates: start: 20080201, end: 20080410
  3. FLUDEX                             /00340101/ [Suspect]
     Route: 048
     Dates: start: 20080201, end: 20080410
  4. FLUDEX                             /00340101/ [Suspect]
     Dosage: FREQUENCY: IRREGULAR
     Route: 048
     Dates: start: 20071201
  5. FLUDEX                             /00340101/ [Suspect]
     Route: 048
     Dates: start: 20071201, end: 20071201
  6. OGASTORO [Suspect]
     Indication: GASTRITIS
     Route: 048
     Dates: start: 20080226, end: 20080410
  7. ELISOR [Suspect]
     Route: 048
     Dates: start: 20080305, end: 20080411
  8. SEROPRAM [Suspect]
     Indication: DEPRESSION
     Route: 048
     Dates: start: 20080326, end: 20080411

REACTIONS (2)
  - AGRANULOCYTOSIS [None]
  - LEUKOPENIA [None]
